FAERS Safety Report 5379568-7 (Version None)
Quarter: 2007Q3

REPORT INFORMATION
  Report Type: 
  Country: None (occurrence: None)
  Receive Date: 20070703
  Receipt Date: 20070620
  Transmission Date: 20080115
  Serious: Yes (Hospitalization, Other)
  Sender: FDA-Public Use
  Company Number: 02100-JPN-07-0303

PATIENT
  Age: 87 Year
  Sex: Male

DRUGS (15)
  1. CILOSTAZOL [Suspect]
     Indication: LACUNAR INFARCTION
     Dosage: 200 MG ORAL
     Route: 048
     Dates: start: 20040207
  2. MAGNESIUM OXIDE [Concomitant]
  3. ECABET MONOSODIUM [Concomitant]
  4. ITOPRIDE HYDROCHLORIDE [Concomitant]
  5. NIFEDIPINE [Concomitant]
  6. TAMSULOSIN HCL [Concomitant]
  7. LAFUTIDINE [Concomitant]
  8. HEPARINOID FROM ANIMAL ORGANS [Concomitant]
  9. FLUOCINOLONE ACETONIDE [Concomitant]
  10. DAI-KENCHU-TO [Concomitant]
  11. CLOSTRIDIUM BUTYRICUM [Concomitant]
  12. MOSAPRIDE CITRATE [Concomitant]
  13. SODIM PICOSULFATE [Concomitant]
  14. PANTETHINE [Concomitant]
  15. ASPIRIN [Concomitant]

REACTIONS (4)
  - ANAEMIA [None]
  - BLOOD POTASSIUM INCREASED [None]
  - LARGE INTESTINE CARCINOMA [None]
  - RENAL IMPAIRMENT [None]
